FAERS Safety Report 4414116-7 (Version None)
Quarter: 2004Q3

REPORT INFORMATION
  Report Type: 
  Country: None (occurrence: None)
  Receive Date: 20040803
  Receipt Date: 20040519
  Transmission Date: 20050211
  Serious: Yes (Death, Hospitalization)
  Sender: FDA-Public Use
  Company Number: FR-BRISTOL-MYERS SQUIBB COMPANY-12596789

PATIENT
  Age: 21 Year
  Sex: Male

DRUGS (12)
  1. ENDOXAN [Suspect]
     Indication: HODGKIN'S DISEASE
     Route: 042
     Dates: start: 20010601, end: 20011101
  2. BLEOMYCIN SULFATE [Suspect]
     Indication: HODGKIN'S DISEASE
     Route: 042
     Dates: start: 20010601, end: 20011101
  3. BICNU [Suspect]
     Indication: HODGKIN'S DISEASE
     Route: 042
     Dates: start: 20010601, end: 20011101
  4. VEPESID [Suspect]
     Indication: HODGKIN'S DISEASE
     Dosage: 1460 MG
     Dates: start: 20010601, end: 20011101
  5. ALKERAN [Suspect]
     Indication: HODGKIN'S DISEASE
     Route: 042
     Dates: start: 20010601, end: 20011101
  6. VINBLASTINE SULFATE [Suspect]
     Indication: HODGKIN'S DISEASE
     Route: 042
     Dates: start: 20010601, end: 20011101
  7. DEROXAT [Suspect]
     Dates: start: 20030101
  8. RADIOTHERAPY [Suspect]
     Indication: LYMPHOMA
  9. LEXOMIL [Suspect]
     Dates: start: 20030101
  10. ADRIBLASTINE [Suspect]
     Indication: HODGKIN'S DISEASE
     Dates: start: 20010601, end: 20011101
  11. DETICENE [Suspect]
     Indication: HODGKIN'S DISEASE
     Dates: start: 20010601, end: 20011101
  12. ARACYTINE [Suspect]
     Indication: HODGKIN'S DISEASE
     Dosage: 2960 MG
     Dates: start: 20010601, end: 20011101

REACTIONS (2)
  - PULMONARY FIBROSIS [None]
  - RESPIRATORY DISTRESS [None]
